FAERS Safety Report 6030044-8 (Version None)
Quarter: 2008Q4

REPORT INFORMATION
  Report Type: 
  Country: None (occurrence: None)
  Receive Date: 20081222
  Receipt Date: 20080915
  Transmission Date: 20090506
  Serious: Yes (Other)
  Sender: FDA-Public Use
  Company Number: US-WYE-H06015908

PATIENT
  Age: 31 Year
  Sex: Female

DRUGS (7)
  1. PRISTIQ [Suspect]
     Indication: MAJOR DEPRESSION
     Dosage: 50 MG 1X PER 3 DAY, ORAL
     Route: 048
     Dates: start: 20081001, end: 20081013
  2. MORPHINE [Concomitant]
  3. LYRICA [Concomitant]
  4. XANAX [Concomitant]
  5. CLONAZEPAM [Concomitant]
  6. REQUIP (ROPINIROLE HYDROCHLORINE) [Concomitant]
  7. ROZEREM [Concomitant]

REACTIONS (2)
  - FACE OEDEMA [None]
  - OEDEMA PERIPHERAL [None]
